FAERS Safety Report 7028488-0 (Version None)
Quarter: 2010Q4

REPORT INFORMATION
  Report Type: 
  Country: None (occurrence: None)
  Receive Date: 20101005
  Receipt Date: 20100922
  Transmission Date: 20110411
  Serious: Yes (Hospitalization, Other)
  Sender: FDA-Public Use
  Company Number: TW-PFIZER INC-2010118600

PATIENT
  Age: 51 Year
  Sex: Male

DRUGS (8)
  1. QUETIAPINE [Suspect]
     Indication: MANIA
     Dosage: 350 MG/DAY
  2. SERTRALINE HYDROCHLORIDE [Concomitant]
     Indication: DEPRESSION
     Dosage: 50 MG, UNK
  3. LORAZEPAM [Concomitant]
     Indication: DEPRESSION
     Dosage: 0.5 MG, HORA SOMNI (HS)
  4. FOSINOPRIL [Concomitant]
     Indication: HYPERTENSION
     Dosage: 5 MG, UNK
  5. FOSINOPRIL [Concomitant]
     Indication: CORONARY ARTERY DISEASE
  6. ACETYLSALICYLIC ACID [Concomitant]
     Indication: HYPERTENSION
     Dosage: 100 MG, UNK
  7. ACETYLSALICYLIC ACID [Concomitant]
     Indication: CORONARY ARTERY DISEASE
  8. VALPROIC ACID [Concomitant]
     Indication: MANIA
     Dosage: 1000 MG/DAY

REACTIONS (1)
  - SICK SINUS SYNDROME [None]
